FAERS Safety Report 23664707 (Version 1)
Quarter: 2024Q1

REPORT INFORMATION
  Report Type: Spontaneous
  Country: JP (occurrence: None)
  Receive Date: 20240322
  Receipt Date: 20240322
  Transmission Date: 20240410
  Serious: Yes (Death, Life-Threatening, Other)
  Sender: FDA-Public Use
  Company Number: 2023A102080

PATIENT
  Age: 60 Year
  Sex: Female
  Weight: 60 kg

DRUGS (17)
  1. LYNPARZA [Suspect]
     Active Substance: OLAPARIB
     Indication: Ovarian cancer recurrent
     Route: 048
     Dates: start: 20200508, end: 20200605
  2. LYNPARZA [Suspect]
     Active Substance: OLAPARIB
     Indication: Ovarian cancer recurrent
     Route: 048
     Dates: start: 20200606, end: 20200925
  3. LYNPARZA [Suspect]
     Active Substance: OLAPARIB
     Indication: Ovarian cancer recurrent
     Route: 048
     Dates: start: 20200611, end: 20211226
  4. LYNPARZA [Suspect]
     Active Substance: OLAPARIB
     Indication: Ovarian cancer recurrent
     Route: 048
     Dates: start: 20201010, end: 20201210
  5. LYNPARZA [Suspect]
     Active Substance: OLAPARIB
     Indication: Ovarian cancer recurrent
     Route: 048
     Dates: start: 20201211, end: 20210610
  6. PACLITAXEL [Suspect]
     Active Substance: PACLITAXEL
     Indication: Ovarian cancer
     Dosage: DOSE UNKNOWN
     Dates: start: 20170620, end: 20180221
  7. CARBOPLATIN [Suspect]
     Active Substance: CARBOPLATIN
     Indication: Ovarian cancer
     Dosage: DOSE UNKNOWN
     Dates: start: 20170620, end: 20180221
  8. CARBOPLATIN [Suspect]
     Active Substance: CARBOPLATIN
     Indication: Ovarian cancer recurrent
     Dosage: DOSE UNKNOWN
     Dates: start: 20170620, end: 20180221
  9. CARBOPLATIN [Suspect]
     Active Substance: CARBOPLATIN
     Indication: Ovarian cancer
     Dosage: DOSE UNKNOWN
     Dates: start: 20180525, end: 20181026
  10. CARBOPLATIN [Suspect]
     Active Substance: CARBOPLATIN
     Indication: Ovarian cancer recurrent
     Dosage: DOSE UNKNOWN
     Dates: start: 20180525, end: 20181026
  11. BLEOMYCIN [Suspect]
     Active Substance: BLEOMYCIN SULFATE
     Indication: Ovarian cancer
     Dosage: DOSE UNKNOWN
     Dates: start: 20180525, end: 20181026
  12. VINBLASTINE SULFATE\VINCRISTINE SULFATE [Suspect]
     Active Substance: VINBLASTINE SULFATE\VINCRISTINE SULFATE
     Indication: Ovarian cancer recurrent
     Dosage: DOSE UNKNOWN
     Dates: start: 20180525, end: 20181026
  13. METOCLOPRAMIDE [Concomitant]
     Active Substance: METOCLOPRAMIDE
     Indication: Ovarian cancer recurrent
     Route: 048
     Dates: start: 20200508, end: 20200626
  14. DOXORUBICIN HYDROCHLORIDE [Suspect]
     Active Substance: DOXORUBICIN HYDROCHLORIDE
     Dates: start: 20180525
  15. ETOPOSIDE [Suspect]
     Active Substance: ETOPOSIDE
     Dates: start: 20180525
  16. MECHLORETHAMINE HYDROCHLORIDE [Suspect]
     Active Substance: MECHLORETHAMINE HYDROCHLORIDE
     Dates: start: 20180525
  17. PREDNISONE [Suspect]
     Active Substance: PREDNISONE
     Dates: start: 20180525

REACTIONS (4)
  - Myelodysplastic syndrome [Fatal]
  - Malignant neoplasm progression [Fatal]
  - Muscle spasms [Recovered/Resolved]
  - Blood creatine phosphokinase increased [Recovered/Resolved]

NARRATIVE: CASE EVENT DATE: 20200606
